FAERS Safety Report 18928624 (Version 4)
Quarter: 2021Q2

REPORT INFORMATION
  Report Type: Report from Study
  Country: GB (occurrence: GB)
  Receive Date: 20210223
  Receipt Date: 20210512
  Transmission Date: 20210717
  Serious: Yes (Hospitalization, Other)
  Sender: FDA-Public Use
  Company Number: GB-BRISTOL-MYERS SQUIBB COMPANY-BMS-2021-015846

PATIENT
  Age: 78 Year
  Sex: Male
  Weight: 90 kg

DRUGS (14)
  1. CARVEDILOL. [Concomitant]
     Active Substance: CARVEDILOL
     Indication: HEPATIC CIRRHOSIS
     Dosage: 12.5 MILLIGRAM, QD (EVERY MORNING AT 6AM)
     Route: 048
     Dates: start: 202010
  2. FEBUXOSTAT. [Concomitant]
     Active Substance: FEBUXOSTAT
     Indication: DIABETES MELLITUS
     Dosage: 80 MILLIGRAM, QD
     Route: 048
     Dates: start: 2018
  3. NIVOLUMAB [Suspect]
     Active Substance: NIVOLUMAB
     Indication: HEPATOCELLULAR CARCINOMA
     Dosage: 1 DOSAGE FORM = 480
     Route: 042
     Dates: start: 20210126
  4. FINASTERIDE. [Concomitant]
     Active Substance: FINASTERIDE
     Indication: ERECTILE DYSFUNCTION
     Dosage: 5 MILLIGRAM, QD
     Route: 048
     Dates: start: 2018
  5. OMEPRAZOLE. [Concomitant]
     Active Substance: OMEPRAZOLE
     Indication: GASTRIC DISORDER
     Dosage: 40 MILLIGRAM, QD
     Route: 048
     Dates: start: 2018
  6. OMPRAZOLE [Concomitant]
     Active Substance: OMEPRAZOLE
     Indication: GASTRIC DISORDER
     Dosage: 20 ABSENT, QD
     Route: 048
     Dates: start: 20210217
  7. SANDO K [POTASSIUM CHLORIDE] [Concomitant]
     Active Substance: POTASSIUM
     Indication: BLOOD POTASSIUM DECREASED
     Dosage: 1 TAB, BID
     Route: 048
     Dates: start: 20210217, end: 20210218
  8. LEVOTHYROXINE. [Concomitant]
     Active Substance: LEVOTHYROXINE
     Indication: HYPOTHYROIDISM
     Dosage: 75 UNIT, QD
     Route: 048
     Dates: start: 2018
  9. FERROUS FUMARATE [Concomitant]
     Active Substance: FERROUS FUMARATE
     Indication: IRON DEFICIENCY
     Dosage: 210 MILLIGRAM, BID
     Route: 048
     Dates: start: 2018
  10. SALBUTAMOL [Concomitant]
     Active Substance: ALBUTEROL
     Indication: ASTHMA
     Dosage: 400 MILLIGRAM, PRN
     Route: 048
     Dates: start: 2018
  11. TAMSULOSIN [Concomitant]
     Active Substance: TAMSULOSIN
     Indication: PROSTATOMEGALY
     Dosage: 400 MILLIGRAM, QD
     Route: 048
     Dates: start: 2018
  12. CANDESARTAN. [Concomitant]
     Active Substance: CANDESARTAN
     Indication: PRODUCT USED FOR UNKNOWN INDICATION
     Dosage: UNK
     Route: 065
  13. METFORMIN [Concomitant]
     Active Substance: METFORMIN HYDROCHLORIDE
     Indication: DIABETES MELLITUS
     Dosage: 500 MILLIGRAM, BID
     Route: 048
     Dates: start: 2018
  14. FUROSEMIDE. [Concomitant]
     Active Substance: FUROSEMIDE
     Indication: HEPATIC CIRRHOSIS
     Dosage: 40 MILLIGRAM, QD
     Route: 048
     Dates: start: 202010

REACTIONS (2)
  - Acute kidney injury [Recovered/Resolved with Sequelae]
  - Tubulointerstitial nephritis [Unknown]

NARRATIVE: CASE EVENT DATE: 20210215
